FAERS Safety Report 16693598 (Version 3)
Quarter: 2019Q3

REPORT INFORMATION
  Report Type: Spontaneous
  Country: JP (occurrence: JP)
  Receive Date: 20190812
  Receipt Date: 20190924
  Transmission Date: 20191004
  Serious: Yes (Death, Hospitalization)
  Sender: FDA-Public Use
  Company Number: JP-NAPPMUNDI-GBR-2019-0067421

PATIENT
  Age: 85 Year
  Sex: Male

DRUGS (6)
  1. MAGNESIUM OXIDE. [Suspect]
     Active Substance: MAGNESIUM OXIDE
     Indication: CONSTIPATION
     Dosage: UNK
     Route: 048
     Dates: start: 2019, end: 20190509
  2. ARGAMATE [Concomitant]
     Active Substance: CALCIUM POLYSTYRENE SULFONATE
     Indication: HYPERKALAEMIA
     Dosage: 75 MG, DAILY
     Route: 048
  3. OXYCONTIN [Suspect]
     Active Substance: OXYCODONE HYDROCHLORIDE
     Indication: CANCER PAIN
     Dosage: 10 MG, DAILY
     Route: 048
     Dates: start: 201903, end: 20190612
  4. LANSOPRAZOLE. [Concomitant]
     Active Substance: LANSOPRAZOLE
     Indication: GASTROINTESTINAL MUCOSAL DISORDER
     Dosage: 15 MG, DAILY
     Route: 048
  5. CLARITHROMYCIN. [Concomitant]
     Active Substance: CLARITHROMYCIN
     Indication: PNEUMONIA
     Dosage: 400 MG, DAILY
     Route: 048
  6. NAIXAN                             /00256201/ [Concomitant]
     Active Substance: NAPROXEN
     Indication: PAIN
     Dosage: 400 MG, DAILY
     Route: 048

REACTIONS (3)
  - Diarrhoea [Unknown]
  - Rectal ulcer [Recovering/Resolving]
  - Lung neoplasm malignant [Fatal]

NARRATIVE: CASE EVENT DATE: 20190509
